FAERS Safety Report 11534471 (Version 1)
Quarter: 2015Q3

REPORT INFORMATION
  Report Type: Spontaneous
  Country: US (occurrence: None)
  Receive Date: 20150921
  Receipt Date: 20150921
  Transmission Date: 20151125
  Serious: Yes (Other)
  Sender: FDA-Public Use
  Company Number: None

PATIENT
  Age: 79 Year
  Sex: Male

DRUGS (1)
  1. H.P. ACTHAR [Suspect]
     Active Substance: CORTICOTROPIN
     Indication: RHEUMATOID ARTHRITIS
     Dosage: 80U/ML
     Route: 058
     Dates: start: 20150716, end: 20150917

REACTIONS (2)
  - Hypersensitivity [None]
  - Weight increased [None]

NARRATIVE: CASE EVENT DATE: 20150917
